FAERS Safety Report 14995418 (Version 1)
Quarter: 2018Q2

REPORT INFORMATION
  Report Type: Spontaneous
  Country: US (occurrence: US)
  Receive Date: 20180611
  Receipt Date: 20180611
  Transmission Date: 20180711
  Serious: No
  Sender: FDA-Public Use
  Company Number: US-SA-2018SA145504

PATIENT
  Age: 62 Year
  Sex: Male

DRUGS (1)
  1. ZANTAC 75 [Suspect]
     Active Substance: RANITIDINE HYDROCHLORIDE
     Indication: ACIDOSIS
     Dosage: 75 MG TAKING 1.5 WEEKS

REACTIONS (1)
  - Dizziness [Not Recovered/Not Resolved]
